FAERS Safety Report 16490724 (Version 4)
Quarter: 2020Q1

REPORT INFORMATION
  Report Type: Report from Study
  Country: DK (occurrence: DK)
  Receive Date: 20190628
  Receipt Date: 20200313
  Transmission Date: 20200409
  Serious: Yes (Death, Hospitalization)
  Sender: FDA-Public Use
  Company Number: DK-CELGENEUS-DNK-20190604354

PATIENT
  Age: 71 Year
  Sex: Male
  Weight: 89.4 kg

DRUGS (29)
  1. METOPROLOL. [Concomitant]
     Active Substance: METOPROLOL
     Dosage: 200 MILLIGRAM
     Route: 048
     Dates: start: 20190616, end: 20190623
  2. VOLTAREN [Concomitant]
     Active Substance: DICLOFENAC SODIUM
     Indication: TENSION
     Dosage: 11.6 MGG
     Route: 065
     Dates: start: 20190319
  3. PANTOPRAZOLE [Concomitant]
     Active Substance: PANTOPRAZOLE
     Indication: GASTROOESOPHAGEAL REFLUX DISEASE
     Route: 048
     Dates: start: 20190329, end: 20190521
  4. PARACETAMOL [Concomitant]
     Active Substance: ACETAMINOPHEN
     Dosage: 4000 MILLIGRAM
     Route: 048
     Dates: start: 20190521
  5. DALTEPARIN [Concomitant]
     Active Substance: DALTEPARIN
     Indication: ATRIAL FLUTTER
     Dosage: IE
     Route: 058
     Dates: start: 20190614, end: 20190614
  6. DALTEPARIN [Concomitant]
     Active Substance: DALTEPARIN
     Dosage: 18000
     Route: 058
     Dates: start: 20190325
  7. CITALOPRAM [Concomitant]
     Active Substance: CITALOPRAM HYDROBROMIDE
     Indication: DEPRESSION
     Dosage: 20 MILLIGRAM
     Route: 048
     Dates: start: 20181231
  8. ALLOPURINOL. [Concomitant]
     Active Substance: ALLOPURINOL
     Indication: PROPHYLAXIS
     Dosage: 300 MILLIGRAM
     Route: 048
     Dates: start: 20190521
  9. GANGIDEN [Concomitant]
     Indication: CONSTIPATION
     Dosage: 8
     Route: 048
     Dates: start: 20190607, end: 20190607
  10. VOLTAREN [Concomitant]
     Active Substance: DICLOFENAC SODIUM
     Indication: NECK PAIN
  11. METOPROLOL. [Concomitant]
     Active Substance: METOPROLOL
     Indication: ATRIAL FLUTTER
     Dosage: 150 MILLIGRAM
     Route: 048
     Dates: start: 20181231, end: 20190615
  12. FRAGMIN [Concomitant]
     Active Substance: DALTEPARIN SODIUM
     Indication: PROPHYLAXIS
     Dosage: 18000 IE
     Route: 058
     Dates: start: 20190325
  13. PARACETAMOL [Concomitant]
     Active Substance: ACETAMINOPHEN
     Indication: MALAISE
     Dosage: 4000 MILLIGRAM
     Route: 048
     Dates: start: 20190513, end: 20190603
  14. MOVICOL [Concomitant]
     Active Substance: POLYETHYLENE GLYCOL 3350\POTASSIUM CHLORIDE\SODIUM BICARBONATE\SODIUM CHLORIDE
     Indication: CONSTIPATION
     Route: 048
  15. MACROGOL [Concomitant]
     Active Substance: POLYETHYLENE GLYCOLS
     Indication: CONSTIPATION
     Route: 048
     Dates: start: 20190325, end: 20190521
  16. METOPROLOL. [Concomitant]
     Active Substance: METOPROLOL
     Indication: ATRIAL FLUTTER
     Dosage: 50 MILLIGRAM
     Route: 048
     Dates: start: 20190616, end: 20190616
  17. HYDROXYCARBAMID [Concomitant]
     Active Substance: HYDROXYUREA
     Indication: ACUTE MYELOID LEUKAEMIA
     Dosage: 1000 MILLIGRAM
     Route: 048
     Dates: start: 20190611
  18. IBUPROFEN. [Concomitant]
     Active Substance: IBUPROFEN
     Indication: PRODUCT USED FOR UNKNOWN INDICATION
     Dosage: 1200 MILLIGRAM
     Route: 048
     Dates: start: 20190611, end: 20190615
  19. DIGOXIN. [Concomitant]
     Active Substance: DIGOXIN
     Indication: ATRIAL FLUTTER
     Dosage: 250 MILLIGRAM
     Route: 048
     Dates: start: 20161202
  20. PREDNISOLON [Concomitant]
     Active Substance: PREDNISOLONE
     Indication: ACUTE FEBRILE NEUTROPHILIC DERMATOSIS
     Dosage: 25 MILLIGRAM
     Route: 048
     Dates: start: 20190328, end: 20190513
  21. PANTOPRAZOLE [Concomitant]
     Active Substance: PANTOPRAZOLE
     Dosage: 40 MILLIGRAM
     Route: 048
     Dates: start: 20190611
  22. PARACETAMOL [Concomitant]
     Active Substance: ACETAMINOPHEN
     Indication: BACK PAIN
     Route: 048
     Dates: start: 20190615, end: 20190620
  23. AG-221 [Suspect]
     Active Substance: ENASIDENIB
     Indication: ACUTE MYELOID LEUKAEMIA
     Dosage: 100 MILLIGRAM
     Route: 048
     Dates: start: 20190521, end: 20190603
  24. PARACETAMOL [Concomitant]
     Active Substance: ACETAMINOPHEN
     Dosage: 4000 MILLIGRAM
     Route: 048
     Dates: start: 20190620, end: 20190623
  25. DALTEPARIN [Concomitant]
     Active Substance: DALTEPARIN
     Indication: THROMBOSIS PROPHYLAXIS
     Dosage: IE
     Route: 058
     Dates: start: 20190611
  26. CYTARABINE. [Concomitant]
     Active Substance: CYTARABINE
     Indication: PRODUCT USED FOR UNKNOWN INDICATION
     Route: 041
  27. FRAGMIN [Concomitant]
     Active Substance: DALTEPARIN SODIUM
     Dosage: 18000 IE
     Route: 058
     Dates: start: 20190505
  28. ALMINOX [Concomitant]
     Indication: GASTROOESOPHAGEAL REFLUX DISEASE
     Dosage: 500+100 MG
     Route: 048
     Dates: start: 20190330, end: 20190521
  29. MACROGOL [Concomitant]
     Active Substance: POLYETHYLENE GLYCOLS
     Route: 048
     Dates: start: 20190616, end: 20190623

REACTIONS (3)
  - Differentiation syndrome [Recovered/Resolved]
  - Sepsis [Fatal]
  - Atrial flutter [Not Recovered/Not Resolved]

NARRATIVE: CASE EVENT DATE: 20190603
